FAERS Safety Report 9692360 (Version 1)
Quarter: 2013Q4

REPORT INFORMATION
  Report Type: Spontaneous
  Country: US (occurrence: US)
  Receive Date: 20131118
  Receipt Date: 20131118
  Transmission Date: 20140711
  Serious: No
  Sender: FDA-Public Use
  Company Number: US-PFIZER INC-2013328026

PATIENT
  Age: 67 Year
  Sex: Female
  Weight: 59 kg

DRUGS (2)
  1. LYRICA [Suspect]
     Indication: FIBROMYALGIA
     Dosage: 50 MG, DAILY
     Dates: start: 201310
  2. CYMBALTA [Concomitant]
     Indication: FIBROMYALGIA
     Dosage: 60 MG, DAILY

REACTIONS (3)
  - Dry mouth [Unknown]
  - Dizziness [Unknown]
  - Hot flush [Unknown]
